FAERS Safety Report 20875908 (Version 1)
Quarter: 2022Q2

REPORT INFORMATION
  Report Type: Report from Study
  Country: AU (occurrence: AU)
  Receive Date: 20220526
  Receipt Date: 20220526
  Transmission Date: 20220721
  Serious: Yes (Hospitalization)
  Sender: FDA-Public Use
  Company Number: AU-SA-2022SA168723

PATIENT
  Age: 69 Year
  Weight: 112 kg

DRUGS (25)
  1. ISATUXIMAB [Suspect]
     Active Substance: ISATUXIMAB
     Indication: Plasma cell myeloma
     Dosage: 10 MG/KG, INFUSION RATE (MG/H): 175
     Route: 042
     Dates: start: 20190212, end: 20190212
  2. BORTEZOMIB [Suspect]
     Active Substance: BORTEZOMIB
     Indication: Plasma cell myeloma
     Dosage: 1.3 MG/M2
     Route: 058
     Dates: start: 20190212, end: 20220212
  3. BORTEZOMIB [Suspect]
     Active Substance: BORTEZOMIB
     Dosage: 1.3 MG/M2
     Route: 058
     Dates: start: 20220215, end: 20220215
  4. LENALIDOMIDE [Suspect]
     Active Substance: LENALIDOMIDE
     Indication: Plasma cell myeloma
     Dosage: 25 MG
     Route: 048
     Dates: start: 20190212, end: 20190218
  5. DEXAMETHASONE [Suspect]
     Active Substance: DEXAMETHASONE
     Indication: Plasma cell myeloma
     Dosage: 20 MG
     Route: 042
     Dates: start: 20190212, end: 20190212
  6. DEXAMETHASONE [Suspect]
     Active Substance: DEXAMETHASONE
     Dosage: 20 MG
     Route: 042
     Dates: start: 20190216, end: 20190216
  7. VITAMIN C [Concomitant]
     Active Substance: ASCORBIC ACID
     Indication: Prophylaxis
     Dosage: UNK
     Route: 048
     Dates: start: 1975
  8. VITAMIN B5 [PANTOTHENIC ACID] [Concomitant]
     Indication: Prophylaxis
     Dosage: UNK
     Route: 048
     Dates: start: 1998
  9. VITAMIN B6 [Concomitant]
     Active Substance: PYRIDOXINE HYDROCHLORIDE
     Indication: Prophylaxis
     Dosage: UNK
     Route: 048
     Dates: start: 1998
  10. COBAMAMIDE [Concomitant]
     Active Substance: COBAMAMIDE
     Indication: Prophylaxis
     Dosage: UNK
     Route: 048
     Dates: start: 1998
  11. GINKGO [Concomitant]
     Active Substance: GINKGO
     Indication: Prophylaxis
     Dosage: UNK
     Route: 048
     Dates: start: 2008, end: 202003
  12. MAGNESIUM OROTATE [Concomitant]
     Active Substance: MAGNESIUM OROTATE
     Indication: Prophylaxis
     Dosage: UNK
     Route: 048
     Dates: start: 2015, end: 202003
  13. FLUTICASONE FUROATE [Concomitant]
     Active Substance: FLUTICASONE FUROATE
     Dosage: UNK
     Route: 045
     Dates: start: 2015
  14. CURCUMIN [Concomitant]
     Active Substance: CURCUMIN
     Indication: Prophylaxis
     Dosage: UNK
     Route: 048
     Dates: start: 2017
  15. MELATONIN [Concomitant]
     Active Substance: MELATONIN
     Indication: Prophylaxis
     Dosage: UNK
     Route: 048
     Dates: start: 2017, end: 202004
  16. DOXYLAMINE SUCCINATE [Concomitant]
     Active Substance: DOXYLAMINE SUCCINATE
     Indication: Prophylaxis
     Dosage: UNK
     Route: 048
     Dates: start: 2017, end: 202004
  17. APIXABAN [Concomitant]
     Active Substance: APIXABAN
     Indication: Prophylaxis
     Dosage: UNK
     Route: 048
     Dates: start: 20190212, end: 20190228
  18. ALLOPURINOL [Concomitant]
     Active Substance: ALLOPURINOL
     Indication: Prophylaxis
     Dosage: UNK
     Route: 048
     Dates: start: 20190212, end: 20190228
  19. VALACYCLOVIR HYDROCHLORIDE [Concomitant]
     Active Substance: VALACYCLOVIR HYDROCHLORIDE
     Indication: Prophylaxis
     Dosage: UNK
     Route: 048
     Dates: start: 20190212, end: 20200112
  20. CIPROFLOXACIN [Concomitant]
     Active Substance: CIPROFLOXACIN
     Indication: Prophylaxis
     Dosage: UNK
     Dates: start: 20190213, end: 20190328
  21. CALCIUM\VITAMIN D [Concomitant]
     Active Substance: CALCIUM\VITAMIN D
     Indication: Prophylaxis
     Dosage: UNK
     Route: 048
     Dates: start: 20190215
  22. CHLORVESCENT [POTASSIUM CHLORIDE] [Concomitant]
     Indication: Prophylaxis
     Dosage: UNK
     Route: 048
     Dates: start: 20190215, end: 20190220
  23. CHLORVESCENT [POTASSIUM CHLORIDE] [Concomitant]
     Dosage: UNK
     Route: 048
     Dates: start: 20190221, end: 202005
  24. METOPROLOL [Concomitant]
     Active Substance: METOPROLOL
     Dosage: UNK
     Route: 048
     Dates: start: 20190220, end: 20190321
  25. TEMAZEPAM [Concomitant]
     Active Substance: TEMAZEPAM
     Dosage: UNK
     Route: 048
     Dates: start: 20190222, end: 20200528

REACTIONS (1)
  - Constipation [Recovered/Resolved]

NARRATIVE: CASE EVENT DATE: 20190226
